FAERS Safety Report 19520198 (Version 1)
Quarter: 2021Q3

REPORT INFORMATION
  Report Type: Spontaneous
  Country: RU (occurrence: RU)
  Receive Date: 20210712
  Receipt Date: 20210712
  Transmission Date: 20211014
  Serious: Yes (Other)
  Sender: FDA-Public Use
  Company Number: RU-ROCHE-2865268

PATIENT

DRUGS (1)
  1. COTELLIC [Suspect]
     Active Substance: COBIMETINIB
     Indication: RESPIRATORY TRACT INFECTION VIRAL
     Route: 048

REACTIONS (3)
  - Angiopathy [Unknown]
  - Pulmonary haemorrhage [Unknown]
  - Atelectasis [Unknown]
